FAERS Safety Report 6278212-4 (Version None)
Quarter: 2009Q3

REPORT INFORMATION
  Report Type: 
  Country: None (occurrence: None)
  Receive Date: 20090722
  Receipt Date: 20090709
  Transmission Date: 20100115
  Serious: Yes (Other)
  Sender: FDA-Public Use
  Company Number: CA-MYLANLABS-2009S1012299

PATIENT
  Sex: Male

DRUGS (6)
  1. GEN-NIFEDIPINE [Suspect]
     Indication: HYPERTENSION
     Route: 048
     Dates: start: 20090510, end: 20090524
  2. HYDROCHLOROTHIAZIDE [Concomitant]
     Route: 048
  3. LIPITOR [Concomitant]
     Route: 048
  4. METFORMIN HCL [Concomitant]
     Route: 048
  5. ASPIRIN [Concomitant]
     Dosage: ENTERIC COATED
     Route: 048
  6. ARTHROTEC [Concomitant]
     Route: 048

REACTIONS (3)
  - BLOOD PRESSURE INCREASED [None]
  - MALAISE [None]
  - TINNITUS [None]
